FAERS Safety Report 9523235 (Version 1)
Quarter: 2013Q1

REPORT INFORMATION
  Report Type: Spontaneous
  Country: US (occurrence: None)
  Receive Date: 20130305
  Receipt Date: 20130305
  Transmission Date: 20140127
  Serious: Yes (Other)
  Sender: FDA-Public Use
  Company Number: 163-21880-12020167

PATIENT
  Age: 77 Year
  Sex: Male

DRUGS (5)
  1. REVLIMID (LENALIDOMIDE) (25 MILLIGRAM, CAPSULES) [Suspect]
     Indication: PLASMA CELL MYELOMA
     Route: 048
     Dates: start: 201011
  2. DEXAMETHASONE (DEXAMETHASONE) [Concomitant]
  3. COUMADIN (WARFARIN SODIUM) [Concomitant]
  4. ALLOPURINOL [Concomitant]
  5. BABY ASA (ACETYLSALICYLIC ACID) [Concomitant]

REACTIONS (2)
  - Pancytopenia [None]
  - Deep vein thrombosis [None]
